FAERS Safety Report 23729583 (Version 3)
Quarter: 2024Q3

REPORT INFORMATION
  Report Type: Spontaneous
  Country: JP (occurrence: JP)
  Receive Date: 20240410
  Receipt Date: 20240801
  Transmission Date: 20241017
  Serious: Yes (Death, Life-Threatening, Other)
  Sender: SANOFI AVENTIS
  Company Number: JP-SA-2024SA086242

PATIENT
  Age: 74 Year
  Sex: Female
  Weight: 52.3 kg

DRUGS (34)
  1. CABLIVI [Suspect]
     Active Substance: CAPLACIZUMAB-YHDP
     Indication: Thrombotic thrombocytopenic purpura
     Dosage: 10 MG, QD
     Route: 042
     Dates: start: 20240316, end: 20240316
  2. CABLIVI [Suspect]
     Active Substance: CAPLACIZUMAB-YHDP
     Indication: Thrombotic thrombocytopenic purpura
     Dosage: 10 MG, QD
     Route: 042
     Dates: start: 20240316, end: 20240316
  3. CABLIVI [Suspect]
     Active Substance: CAPLACIZUMAB-YHDP
     Indication: Thrombotic thrombocytopenic purpura
     Dosage: 10 MG, QD
     Route: 042
     Dates: start: 20240316, end: 20240316
  4. CABLIVI [Suspect]
     Active Substance: CAPLACIZUMAB-YHDP
     Indication: Thrombotic thrombocytopenic purpura
     Dosage: 10 MG, QD
     Route: 042
     Dates: start: 20240316, end: 20240316
  5. CABLIVI [Suspect]
     Active Substance: CAPLACIZUMAB-YHDP
     Dosage: 10 MG, QD
     Route: 058
     Dates: start: 20240316, end: 20240317
  6. CABLIVI [Suspect]
     Active Substance: CAPLACIZUMAB-YHDP
     Dosage: 10 MG, QD
     Route: 058
     Dates: start: 20240316, end: 20240317
  7. CABLIVI [Suspect]
     Active Substance: CAPLACIZUMAB-YHDP
     Dosage: 10 MG, QD
     Route: 058
     Dates: start: 20240316, end: 20240317
  8. CABLIVI [Suspect]
     Active Substance: CAPLACIZUMAB-YHDP
     Dosage: 10 MG, QD
     Route: 058
     Dates: start: 20240316, end: 20240317
  9. CABLIVI [Suspect]
     Active Substance: CAPLACIZUMAB-YHDP
     Dosage: 10 MG, QD
     Route: 058
     Dates: start: 20240326, end: 20240327
  10. CABLIVI [Suspect]
     Active Substance: CAPLACIZUMAB-YHDP
     Dosage: 10 MG, QD
     Route: 058
     Dates: start: 20240326, end: 20240327
  11. CABLIVI [Suspect]
     Active Substance: CAPLACIZUMAB-YHDP
     Dosage: 10 MG, QD
     Route: 058
     Dates: start: 20240326, end: 20240327
  12. CABLIVI [Suspect]
     Active Substance: CAPLACIZUMAB-YHDP
     Dosage: 10 MG, QD
     Route: 058
     Dates: start: 20240326, end: 20240327
  13. PREDNISOLONE SODIUM SUCCINATE [Concomitant]
     Active Substance: PREDNISOLONE SODIUM SUCCINATE
     Indication: Thrombotic thrombocytopenic purpura
     Dosage: 50 MG, QD
     Route: 042
     Dates: start: 20240316, end: 20240325
  14. RITUXIMAB [Concomitant]
     Active Substance: RITUXIMAB
     Indication: Thrombotic thrombocytopenic purpura
     Dosage: 500 MG, QW
     Route: 042
     Dates: start: 20240322, end: 20240329
  15. SOLU-MEDROL [Concomitant]
     Active Substance: METHYLPREDNISOLONE SODIUM SUCCINATE
     Indication: Thrombotic thrombocytopenic purpura
     Dosage: 1000 MG, QD
     Route: 042
     Dates: start: 20240325, end: 20240327
  16. SOLU-MEDROL [Concomitant]
     Active Substance: METHYLPREDNISOLONE SODIUM SUCCINATE
     Dosage: 500 MG TO 125 MG, QD
     Route: 042
     Dates: start: 20240328, end: 20240402
  17. PROPOFOL [Concomitant]
     Active Substance: PROPOFOL
     Indication: Altered state of consciousness
     Dosage: 1000 MG, QID
     Route: 042
     Dates: start: 20240316, end: 20240320
  18. PRECEDEX [Concomitant]
     Active Substance: DEXMEDETOMIDINE HYDROCHLORIDE
     Indication: Altered state of consciousness
     Dosage: 2000 UG, BID
     Route: 042
     Dates: start: 20240316, end: 20240320
  19. OMEPRAZOLE SODIUM [Concomitant]
     Active Substance: OMEPRAZOLE SODIUM
     Indication: Prophylaxis
     Dosage: 20 MG, BID
     Route: 042
     Dates: start: 20240316, end: 20240316
  20. FENTANYL CITRATE [Concomitant]
     Active Substance: FENTANYL CITRATE
     Indication: Altered state of consciousness
     Dosage: 0.25 MG, QD
     Route: 042
     Dates: start: 20240316, end: 20240318
  21. MICAFUNGIN SODIUM [Concomitant]
     Active Substance: MICAFUNGIN SODIUM
     Indication: Prophylaxis
     Dosage: 50 MG, QD
     Route: 042
     Dates: start: 20240319, end: 20240402
  22. AMPICILLIN SODIUM\SULBACTAM SODIUM [Concomitant]
     Active Substance: AMPICILLIN SODIUM\SULBACTAM SODIUM
     Indication: Pneumonia
     Dosage: 3 G, QID
     Route: 042
     Dates: start: 20240319, end: 20240327
  23. FUROSEMIDE [Concomitant]
     Active Substance: FUROSEMIDE
     Indication: Fluid retention
     Dosage: 20 MG, QD
     Route: 042
     Dates: start: 20240319, end: 20240319
  24. FUROSEMIDE [Concomitant]
     Active Substance: FUROSEMIDE
     Dosage: 20 MG, QD
     Route: 042
     Dates: start: 20240401, end: 20240401
  25. CALCIUM GLUCONATE [Concomitant]
     Active Substance: CALCIUM GLUCONATE
     Indication: Prophylaxis
     Dosage: 10 ML, QD
     Route: 042
     Dates: start: 20240316, end: 20240401
  26. ACYCLOVIR [Concomitant]
     Active Substance: ACYCLOVIR
     Indication: Prophylaxis
     Dosage: 250 MG, QD
     Route: 042
     Dates: start: 20240327, end: 20240402
  27. CEFEPIME HYDROCHLORIDE [Concomitant]
     Active Substance: CEFEPIME HYDROCHLORIDE
     Indication: Prophylaxis
     Dosage: 1 G, BID
     Route: 042
     Dates: start: 20240327, end: 20240402
  28. HAPTOGLOBIN [Concomitant]
     Indication: Prophylaxis
     Dosage: 4000 U, QD
     Route: 042
     Dates: start: 20240327, end: 20240327
  29. HUMULIN R [Concomitant]
     Active Substance: INSULIN HUMAN
     Indication: Prophylaxis
     Dosage: AS APPROPRIATE
     Route: 058
     Dates: start: 20240319, end: 20240402
  30. ROCURONIUM BROMIDE [Concomitant]
     Active Substance: ROCURONIUM BROMIDE
     Indication: Endotracheal intubation
     Dosage: 50 MG, QD
     Route: 042
     Dates: start: 20240316, end: 20240316
  31. MIDAZOLAM [Concomitant]
     Active Substance: MIDAZOLAM
     Indication: Altered state of consciousness
     Dosage: 10 MG, QD
     Route: 042
     Dates: start: 20240316, end: 20240316
  32. KCL CORRECTIVE [Concomitant]
     Indication: Hypokalaemia
     Dosage: 20 MEQ, BID
     Route: 042
     Dates: start: 20240319, end: 20240321
  33. MAGNESIUM SULFATE [Concomitant]
     Active Substance: MAGNESIUM SULFATE\MAGNESIUM SULFATE HEPTAHYDRATE
     Indication: Hypomagnesaemia
     Dosage: 20 MEQ, QD
     Route: 042
     Dates: start: 20240319, end: 20240319
  34. NAFAMOSTAT MESYLATE [Concomitant]
     Active Substance: NAFAMOSTAT MESYLATE
     Indication: Anticoagulant therapy
     Dosage: 30 MG, QH
     Route: 065
     Dates: start: 20240316

REACTIONS (6)
  - Condition aggravated [Fatal]
  - Multi-organ disorder [Fatal]
  - Gastrointestinal haemorrhage [Not Recovered/Not Resolved]
  - Catheter site haemorrhage [Recovered/Resolved]
  - Pulmonary alveolar haemorrhage [Not Recovered/Not Resolved]
  - Haemoptysis [Not Recovered/Not Resolved]

NARRATIVE: CASE EVENT DATE: 20240318
